FAERS Safety Report 4676703-0 (Version None)
Quarter: 2005Q2

REPORT INFORMATION
  Report Type: 
  Country: None (occurrence: None)
  Receive Date: 20050527
  Receipt Date: 20050418
  Transmission Date: 20051028
  Serious: Yes (Hospitalization)
  Sender: FDA-Public Use
  Company Number: FR-ABBOTT-05P-056-0297953-00

PATIENT
  Sex: Female
  Weight: 94 kg

DRUGS (1)
  1. HUMIRA [Suspect]
     Indication: RHEUMATOID ARTHRITIS
     Route: 058
     Dates: start: 20040311, end: 20050321

REACTIONS (3)
  - EYE PAIN [None]
  - OPTIC NEURITIS RETROBULBAR [None]
  - VISUAL ACUITY REDUCED [None]
